FAERS Safety Report 19777485 (Version 1)
Quarter: 2021Q3

REPORT INFORMATION
  Report Type: Spontaneous
  Country: US (occurrence: US)
  Receive Date: 20210831
  Receipt Date: 20210831
  Transmission Date: 20211014
  Serious: Yes (Hospitalization)
  Sender: FDA-Public Use
  Company Number: None

PATIENT
  Age: 72 Year
  Sex: Male

DRUGS (1)
  1. CAPECITABINE TAB [Suspect]
     Active Substance: CAPECITABINE
     Route: 048
     Dates: start: 20210826

REACTIONS (4)
  - Gait disturbance [None]
  - Hip fracture [None]
  - Dizziness [None]
  - Hypersomnia [None]

NARRATIVE: CASE EVENT DATE: 20210830
